FAERS Safety Report 6903529-7 (Version None)
Quarter: 2010Q3

REPORT INFORMATION
  Report Type: 
  Country: None (occurrence: None)
  Receive Date: 20100803
  Receipt Date: 20081113
  Transmission Date: 20110219
  Serious: No
  Sender: FDA-Public Use
  Company Number: US-PFIZER INC-2008086307

PATIENT
  Sex: Female
  Weight: 59.1 kg

DRUGS (7)
  1. LYRICA [Suspect]
     Indication: FIBROMYALGIA
     Dates: start: 20080601
  2. ETANERCEPT [Concomitant]
  3. DIFLUCAN [Concomitant]
  4. ESTRADIOL [Concomitant]
  5. NEFAZODONE HCL [Concomitant]
  6. VITAMIN TAB [Concomitant]
  7. CALCIUM [Concomitant]

REACTIONS (3)
  - ANORGASMIA [None]
  - DRUG INEFFECTIVE [None]
  - POLLAKIURIA [None]
